FAERS Safety Report 10999068 (Version 6)
Quarter: 2016Q1

REPORT INFORMATION
  Report Type: Spontaneous
  Country: US (occurrence: US)
  Receive Date: 20150408
  Receipt Date: 20160201
  Transmission Date: 20160525
  Serious: Yes (Hospitalization)
  Sender: FDA-Public Use
  Company Number: US-BAYER-2015-099520

PATIENT
  Age: 53 Year
  Sex: Female
  Weight: 68.93 kg

DRUGS (4)
  1. MIRENA [Suspect]
     Active Substance: LEVONORGESTREL
     Dosage: 20 MCG/24HR, CONT
     Route: 015
     Dates: start: 201002, end: 20131210
  2. MIRENA [Suspect]
     Active Substance: LEVONORGESTREL
     Dosage: 20 MCG/24HR, CONT
     Route: 015
     Dates: start: 200502, end: 20100208
  3. VYVANSE [Concomitant]
     Active Substance: LISDEXAMFETAMINE DIMESYLATE
  4. PRISTIQ EXTENDED RELEASE [Concomitant]
     Active Substance: DESVENLAFAXINE SUCCINATE

REACTIONS (7)
  - Complication of device removal [None]
  - Pain [None]
  - Device difficult to use [None]
  - Injury [None]
  - Medical device discomfort [None]
  - Uterine perforation [None]
  - Device breakage [None]

NARRATIVE: CASE EVENT DATE: 20131106
